FAERS Safety Report 6726817-6 (Version None)
Quarter: 2010Q2

REPORT INFORMATION
  Report Type: 
  Country: None (occurrence: None)
  Receive Date: 20100516
  Receipt Date: 20100507
  Transmission Date: 20101027
  Serious: Yes (Other)
  Sender: FDA-Public Use
  Company Number: US-JNJFOC-20100502572

PATIENT
  Sex: Male

DRUGS (3)
  1. LEVAQUIN [Suspect]
     Indication: URINARY TRACT INFECTION
     Route: 048
  2. LEVAQUIN [Suspect]
     Indication: RESPIRATORY TRACT INFECTION
     Route: 048
  3. STEROIDS NOS [Suspect]
     Indication: DRUG USE FOR UNKNOWN INDICATION
     Route: 065

REACTIONS (5)
  - ARTHRITIS [None]
  - FINGER DEFORMITY [None]
  - OSTEOPOROSIS [None]
  - ROTATOR CUFF SYNDROME [None]
  - TRIGGER FINGER [None]
